FAERS Safety Report 16502710 (Version 4)
Quarter: 2019Q3

REPORT INFORMATION
  Report Type: Spontaneous
  Country: JP (occurrence: JP)
  Receive Date: 20190701
  Receipt Date: 20190806
  Transmission Date: 20191004
  Serious: Yes (Other)
  Sender: FDA-Public Use
  Company Number: PHJP2019JP007824

PATIENT
  Age: 78 Year
  Sex: Male

DRUGS (4)
  1. NEORAL [Suspect]
     Active Substance: CYCLOSPORINE
     Indication: APLASTIC ANAEMIA
     Dosage: 200 MG, QD
     Route: 065
  2. NEORAL [Suspect]
     Active Substance: CYCLOSPORINE
     Indication: MYELODYSPLASTIC SYNDROME
     Dosage: 250 MG, QD
     Route: 065
  3. ANTITHYMOCYTE IMMUNOGLOBULIN (RABBIT) [Concomitant]
     Active Substance: LAPINE T-LYMPHOCYTE IMMUNE GLOBULIN
     Indication: APLASTIC ANAEMIA
     Dosage: 200 MG, UNK
     Route: 065
  4. ANTITHYMOCYTE IMMUNOGLOBULIN (RABBIT) [Concomitant]
     Active Substance: LAPINE T-LYMPHOCYTE IMMUNE GLOBULIN
     Indication: MYELODYSPLASTIC SYNDROME

REACTIONS (2)
  - Anaemia [Not Recovered/Not Resolved]
  - Neutrophil count decreased [Not Recovered/Not Resolved]

NARRATIVE: CASE EVENT DATE: 201902
